FAERS Safety Report 13231991 (Version 1)
Quarter: 2017Q1

REPORT INFORMATION
  Report Type: Report from Study
  Country: CZ (occurrence: CZ)
  Receive Date: 20170214
  Receipt Date: 20170214
  Transmission Date: 20170428
  Serious: Yes (Other)
  Sender: FDA-Public Use
  Company Number: CZ-TAKEDA-2017TUS003080

PATIENT
  Age: 24 Year
  Sex: Female
  Weight: 60 kg

DRUGS (13)
  1. CIPRINOL                           /00697202/ [Concomitant]
     Indication: CROHN^S DISEASE
     Dosage: 500 MG, BID
     Route: 048
     Dates: start: 20160218, end: 20160325
  2. ENTIZOL [Concomitant]
     Active Substance: METRONIDAZOLE
     Dosage: 500 MG, BID
     Route: 048
     Dates: start: 20160601
  3. CIPRINOL                           /00697202/ [Concomitant]
     Indication: GASTROENTERITIS
     Dosage: 500 MG, BID
     Route: 048
     Dates: start: 20160908, end: 20160915
  4. ENTIZOL [Concomitant]
     Active Substance: METRONIDAZOLE
     Indication: CROHN^S DISEASE
     Dosage: 500 MG, BID
     Route: 048
     Dates: start: 20160218, end: 20160325
  5. ENTIZOL [Concomitant]
     Active Substance: METRONIDAZOLE
     Indication: GASTROENTERITIS
     Dosage: 500 MG, BID
     Route: 048
     Dates: start: 20160908, end: 20160915
  6. CIPRINOL                           /00697202/ [Concomitant]
     Dosage: 500 MG, BID
     Route: 048
     Dates: start: 20160601
  7. HELICID                            /00661201/ [Concomitant]
     Indication: DYSPEPSIA
     Dosage: 20 MG, QD
     Route: 048
     Dates: start: 20161222
  8. VEDOLIZUMAB [Suspect]
     Active Substance: VEDOLIZUMAB
     Indication: CROHN^S DISEASE
     Dosage: 300 MG, UNK
     Route: 042
     Dates: start: 20160323, end: 20161222
  9. MIRTAZAPIN [Concomitant]
     Active Substance: MIRTAZAPINE
     Indication: ANXIETY
     Dosage: 15 UNK, QD
     Route: 048
     Dates: start: 20151006
  10. VIGANTOL                           /00318501/ [Concomitant]
     Active Substance: CHOLECALCIFEROL
     Indication: SUPPLEMENTATION THERAPY
     Dosage: 15 GTT, 1/WEEK
     Route: 048
     Dates: start: 20160505
  11. FAKTU [Concomitant]
     Indication: ACROCHORDON
     Dosage: UNK, QD
     Route: 061
     Dates: start: 20160120
  12. PENTASA [Concomitant]
     Active Substance: MESALAMINE
     Indication: CROHN^S DISEASE
     Dosage: 2 G, BID
     Route: 048
     Dates: start: 2014
  13. NOVALGIN [Concomitant]
     Active Substance: METAMIZOLE SODIUM
     Indication: ABDOMINAL PAIN
     Dosage: 500 MG, UNK
     Route: 048
     Dates: start: 20160217

REACTIONS (1)
  - Abortion spontaneous [Recovered/Resolved]

NARRATIVE: CASE EVENT DATE: 20170123
